FAERS Safety Report 8808782 (Version 2)
Quarter: 2014Q2

REPORT INFORMATION
  Report Type: Spontaneous
  Country: US (occurrence: US)
  Receive Date: 20120926
  Receipt Date: 20131024
  Transmission Date: 20141212
  Serious: Yes (Other)
  Sender: FDA-Public Use
  Company Number: US-PFIZER INC-2012235011

PATIENT
  Age: 51 Year
  Sex: Female
  Weight: 76.19 kg

DRUGS (1)
  1. LYBREL [Suspect]
     Indication: HORMONE REPLACEMENT THERAPY
     Dosage: UNK

REACTIONS (2)
  - Hypertension [Unknown]
  - Intentional product misuse [Unknown]
